FAERS Safety Report 6456261-0 (Version None)
Quarter: 2009Q4

REPORT INFORMATION
  Report Type: 
  Country: None (occurrence: None)
  Receive Date: 20091125
  Receipt Date: 20091112
  Transmission Date: 20100525
  Serious: Yes (Other)
  Sender: FDA-Public Use
  Company Number: US-ELI_LILLY_AND_COMPANY-US200910005901

PATIENT
  Sex: Female

DRUGS (2)
  1. FORTEO [Suspect]
     Dosage: UNK, UNK
     Route: 058
     Dates: end: 20091105
  2. ZOMETA [Concomitant]
     Dosage: UNK, MONTHLY (1/M)
     Route: 042

REACTIONS (1)
  - NEOPLASM MALIGNANT [None]
